FAERS Safety Report 14280708 (Version 1)
Quarter: 2017Q4

REPORT INFORMATION
  Report Type: Spontaneous
  Country: US (occurrence: None)
  Receive Date: 20171212
  Receipt Date: 20171212
  Transmission Date: 20180321
  Serious: Yes (Hospitalization)
  Sender: FDA-Public Use
  Company Number: None

PATIENT
  Age: 71 Year
  Sex: Male
  Weight: 125.4 kg

DRUGS (13)
  1. ALLOPURINOL (ZYLOPRIM) [Concomitant]
  2. VASOTEC [Concomitant]
     Active Substance: ENALAPRIL MALEATE
  3. LATANOPROST (XALATAN) [Concomitant]
  4. FLOMAX [Concomitant]
     Active Substance: TAMSULOSIN HYDROCHLORIDE
  5. TRAMADOL (ULTRAM) [Concomitant]
  6. LASIX [Suspect]
     Active Substance: FUROSEMIDE
  7. OMEGA-3 FATTY ACIDS (LOVAZA) [Concomitant]
  8. ATENOLOL (TENORMIN) [Concomitant]
  9. PRILOSEC [Concomitant]
     Active Substance: OMEPRAZOLE MAGNESIUM
  10. MAGNESIUM OXIDE (MAG-OX) [Concomitant]
  11. ASPIRIN. [Concomitant]
     Active Substance: ASPIRIN
  12. METFORMIN (GLUCOPHAGE) [Concomitant]
  13. PRAVACHOL [Concomitant]
     Active Substance: PRAVASTATIN SODIUM

REACTIONS (1)
  - Acute kidney injury [None]

NARRATIVE: CASE EVENT DATE: 20170602
